FAERS Safety Report 5153091-7 (Version None)
Quarter: 2006Q4

REPORT INFORMATION
  Report Type: 
  Country: None (occurrence: None)
  Receive Date: 20061117
  Receipt Date: 20061113
  Transmission Date: 20070319
  Serious: Yes (Hospitalization)
  Sender: FDA-Public Use
  Company Number: JP-AVENTIS-200613551JP

PATIENT
  Age: 60 Year
  Sex: Female

DRUGS (4)
  1. ALLEGRA [Suspect]
     Indication: HYPERSENSITIVITY
     Route: 048
     Dates: start: 20061102, end: 20061110
  2. PREDONINE                          /00016201/ [Concomitant]
     Dates: start: 20061102
  3. EBASTEL [Concomitant]
     Dates: start: 20061102
  4. ZANTAC [Concomitant]
     Dates: start: 20061102

REACTIONS (1)
  - FEBRILE NEUTROPENIA [None]
